FAERS Safety Report 8567455-2 (Version None)
Quarter: 2012Q3

REPORT INFORMATION
  Report Type: 
  Country: None (occurrence: None)
  Receive Date: 20120803
  Receipt Date: 20120731
  Transmission Date: 20120928
  Serious: Yes (Other)
  Sender: FDA-Public Use
  Company Number: PHHY2012FR051743

PATIENT
  Sex: Female
  Weight: 77 kg

DRUGS (2)
  1. ACETAMINOPHEN [Concomitant]
     Dosage: 3 G DAILY FOR 3 TO 5 DAYS
  2. ZOLEDRONOC ACID [Suspect]
     Indication: OSTEOPOROSIS
     Route: 042
     Dates: start: 20110901

REACTIONS (7)
  - DEPRESSION [None]
  - DRUG INTOLERANCE [None]
  - TREMOR [None]
  - FEELING ABNORMAL [None]
  - SPEECH DISORDER [None]
  - PAIN [None]
  - MEMORY IMPAIRMENT [None]
